FAERS Safety Report 6078637-6 (Version None)
Quarter: 2009Q1

REPORT INFORMATION
  Report Type: 
  Country: None (occurrence: None)
  Receive Date: 20090215
  Receipt Date: 20090203
  Transmission Date: 20090719
  Serious: Yes (Other)
  Sender: FDA-Public Use
  Company Number: DE-PFIZER INC-2008100426

PATIENT

DRUGS (2)
  1. AZULFIDINE EN-TABS [Suspect]
     Dosage: 1000 MG, 3X/DAY
     Route: 048
  2. AZULFIDINE EN-TABS [Suspect]
     Dosage: 500 MG, 2X/DAY

REACTIONS (3)
  - ANAEMIA [None]
  - DYSPNOEA [None]
  - TACHYCARDIA [None]
